FAERS Safety Report 7750768-1 (Version None)
Quarter: 2011Q3

REPORT INFORMATION
  Report Type: 
  Country: None (occurrence: None)
  Receive Date: 20110914
  Receipt Date: 20110908
  Transmission Date: 20111222
  Serious: Yes (Other)
  Sender: FDA-Public Use
  Company Number: IL-NAPPMUNDI-GBR-2011-0007628

PATIENT
  Sex: Female

DRUGS (1)
  1. BUTRANS [Suspect]
     Indication: BONE PAIN
     Dosage: 20 MCG, Q1H
     Route: 062
     Dates: start: 20081126, end: 20100414

REACTIONS (5)
  - APPLICATION SITE BURN [None]
  - APPLICATION SITE VESICLES [None]
  - WOUND [None]
  - APPLICATION SITE DISCHARGE [None]
  - APPLICATION SITE PRURITUS [None]
